FAERS Safety Report 12621530 (Version 2)
Quarter: 2016Q3

REPORT INFORMATION
  Report Type: Spontaneous
  Country: JP (occurrence: JP)
  Receive Date: 20160804
  Receipt Date: 20160816
  Transmission Date: 20161109
  Serious: Yes (Other)
  Sender: FDA-Public Use
  Company Number: JP-BRISTOL-MYERS SQUIBB COMPANY-BMS-2016-062603

PATIENT
  Age: 72 Year
  Sex: Female

DRUGS (2)
  1. EQUA [Suspect]
     Active Substance: VILDAGLIPTIN
     Indication: DIABETES MELLITUS
     Dosage: 50 MG PER DAY
     Route: 048
     Dates: end: 201607
  2. METGLUCO [Suspect]
     Active Substance: METFORMIN HYDROCHLORIDE
     Indication: DIABETES MELLITUS
     Dosage: 500 MG, UNK
     Route: 048
     Dates: end: 201607

REACTIONS (1)
  - Pemphigoid [Recovered/Resolved]

NARRATIVE: CASE EVENT DATE: 201607
